FAERS Safety Report 11774049 (Version 1)
Quarter: 2015Q4

REPORT INFORMATION
  Report Type: Spontaneous
  Country: US (occurrence: US)
  Receive Date: 20151124
  Receipt Date: 20151124
  Transmission Date: 20160304
  Serious: No
  Sender: FDA-Public Use
  Company Number: US-PERNIX THERAPEUTICS-2015PT000198

PATIENT

DRUGS (7)
  1. HYDROCODONE BITARTRATE. [Suspect]
     Active Substance: HYDROCODONE BITARTRATE
     Dosage: UNK
     Dates: start: 201505
  2. MELOXICAM. [Concomitant]
     Active Substance: MELOXICAM
     Indication: FIBROMYALGIA
     Dosage: 7.5 MG, UNK
     Dates: start: 201505
  3. BACLOFEN. [Concomitant]
     Active Substance: BACLOFEN
     Indication: MUSCLE RELAXANT THERAPY
     Dosage: 10 MG, UNK
     Dates: start: 201505
  4. DIAZEPAM. [Concomitant]
     Active Substance: DIAZEPAM
     Dosage: 5 MG, UNK
     Dates: start: 201505
  5. GABAPENTIN. [Concomitant]
     Active Substance: GABAPENTIN
     Indication: PAIN
     Dosage: 100 MG, UNK
     Dates: start: 201505
  6. LYRICA [Suspect]
     Active Substance: PREGABALIN
     Dosage: 20 MG, DAILY
     Dates: start: 2015, end: 2015
  7. GABAPENTIN. [Concomitant]
     Active Substance: GABAPENTIN
     Indication: NEURALGIA
     Dosage: 300 MG, UNK

REACTIONS (8)
  - Pain in extremity [Not Recovered/Not Resolved]
  - Neck pain [None]
  - Back pain [Not Recovered/Not Resolved]
  - Dizziness [None]
  - Musculoskeletal pain [None]
  - Arthritis [Not Recovered/Not Resolved]
  - Nausea [None]
  - Gait disturbance [None]

NARRATIVE: CASE EVENT DATE: 20150925
